FAERS Safety Report 16653791 (Version 3)
Quarter: 2023Q1

REPORT INFORMATION
  Report Type: Spontaneous
  Country: FR (occurrence: FR)
  Receive Date: 20190731
  Receipt Date: 20230314
  Transmission Date: 20230418
  Serious: Yes (Life-Threatening, Hospitalization, Other)
  Sender: FDA-Public Use
  Company Number: None

PATIENT
  Sex: Male
  Weight: 2.23 kg

DRUGS (21)
  1. CLOBAZAM [Suspect]
     Active Substance: CLOBAZAM
     Indication: Product used for unknown indication
     Dosage: 1 DF, QD
     Route: 064
     Dates: start: 20170515, end: 20170614
  2. CLOBAZAM [Suspect]
     Active Substance: CLOBAZAM
     Dosage: 2 DF, QD
     Route: 064
     Dates: start: 20170515, end: 20170614
  3. LOVENOX [Suspect]
     Active Substance: ENOXAPARIN SODIUM
     Indication: Product used for unknown indication
     Dosage: 8000 IU, QD
     Route: 064
     Dates: start: 20170515, end: 20170524
  4. CHOLECALCIFEROL [Suspect]
     Active Substance: CHOLECALCIFEROL
     Indication: Product used for unknown indication
     Dosage: 1000 IU
     Route: 064
     Dates: start: 20170522, end: 20170522
  5. CEFIXIME [Suspect]
     Active Substance: CEFIXIME
     Indication: Product used for unknown indication
     Dosage: 200 MG, QD
     Route: 064
     Dates: start: 20170515, end: 20170522
  6. POLYETHYLENE GLYCOL 3350\POTASSIUM CHLORIDE\SODIUM BICARBONATE\SODIUM [Suspect]
     Active Substance: POLYETHYLENE GLYCOL 3350\POTASSIUM CHLORIDE\SODIUM BICARBONATE\SODIUM CHLORIDE
     Indication: Product used for unknown indication
     Dosage: UNK
     Route: 064
     Dates: start: 20170515, end: 20170614
  7. IOVERSOL [Suspect]
     Active Substance: IOVERSOL
     Indication: Computerised tomogram head
     Dosage: 60 ML, TOTAL
     Route: 064
     Dates: start: 20170428, end: 20170428
  8. NIMODIPINE [Suspect]
     Active Substance: NIMODIPINE
     Indication: Product used for unknown indication
     Dosage: 60 MG, QD
     Route: 064
  9. NIMODIPINE [Suspect]
     Active Substance: NIMODIPINE
     Dosage: 240 MG
     Route: 064
  10. NIMODIPINE [Suspect]
     Active Substance: NIMODIPINE
     Dosage: 240 MG
     Route: 064
  11. BETAMETHASONE [Suspect]
     Active Substance: BETAMETHASONE
     Indication: Threatened labour
     Dosage: UNK
     Route: 064
     Dates: start: 20170502, end: 20170503
  12. LACTULOSE [Suspect]
     Active Substance: LACTULOSE
     Indication: Product used for unknown indication
     Dosage: UNK, UNK
     Route: 064
     Dates: start: 20170523, end: 20170622
  13. PRIMPERAN [Suspect]
     Active Substance: METOCLOPRAMIDE HYDROCHLORIDE
     Indication: Product used for unknown indication
     Dosage: 10 MG, QD
     Route: 064
     Dates: start: 20170629, end: 20170809
  14. PRIMPERAN [Suspect]
     Active Substance: METOCLOPRAMIDE HYDROCHLORIDE
     Indication: Product used for unknown indication
     Dosage: 30 MG
     Route: 064
     Dates: start: 20170629, end: 20170809
  15. PRIMPERAN [Suspect]
     Active Substance: METOCLOPRAMIDE HYDROCHLORIDE
     Dosage: 100 ML, QD
     Route: 064
     Dates: start: 20170515, end: 20170520
  16. PRIMPERAN [Suspect]
     Active Substance: METOCLOPRAMIDE HYDROCHLORIDE
     Dosage: 300 ML, QD
     Route: 064
     Dates: start: 20170515, end: 20170520
  17. PIPERACILLIN SODIUM\TAZOBACTAM SODIUM [Suspect]
     Active Substance: PIPERACILLIN SODIUM\TAZOBACTAM SODIUM
     Indication: Product used for unknown indication
     Dosage: UNK
     Route: 064
  18. POTASSIUM CHLORIDE [Suspect]
     Active Substance: POTASSIUM CHLORIDE
     Indication: Product used for unknown indication
     Dosage: UNK
     Route: 064
     Dates: start: 20170515, end: 20170522
  19. SUFENTANIL [Suspect]
     Active Substance: SUFENTANIL
     Indication: Sedation
     Dosage: UNK
     Route: 064
     Dates: start: 20170428, end: 20170503
  20. MIDAZOLAM [Suspect]
     Active Substance: MIDAZOLAM
     Indication: Sedation
     Dosage: UNK
     Route: 064
     Dates: start: 20170428, end: 20170503
  21. NOREPINEPHRINE\NOREPINEPHRINE BITARTRATE [Suspect]
     Active Substance: NOREPINEPHRINE\NOREPINEPHRINE BITARTRATE
     Indication: Product used for unknown indication
     Dosage: UNK
     Route: 064

REACTIONS (5)
  - Neonatal respiratory distress syndrome [Recovered/Resolved]
  - Premature baby [Recovered/Resolved]
  - Low birth weight baby [Unknown]
  - Maternal exposure during pregnancy [Unknown]
  - Foetal exposure during pregnancy [Unknown]

NARRATIVE: CASE EVENT DATE: 20161123
